FAERS Safety Report 7258383-3 (Version None)
Quarter: 2011Q1

REPORT INFORMATION
  Report Type: 
  Country: None (occurrence: None)
  Receive Date: 20110129
  Receipt Date: 20100707
  Transmission Date: 20110831
  Serious: No
  Sender: FDA-Public Use
  Company Number: US-ABBOTT-10P-163-0656383-00

PATIENT
  Sex: Female
  Weight: 61.29 kg

DRUGS (3)
  1. ZYRTEC [Concomitant]
     Indication: SEASONAL ALLERGY
  2. BIRTH CONTROL [Concomitant]
     Indication: PRODUCT USED FOR UNKNOWN INDICATION
  3. HUMIRA [Suspect]
     Indication: PSORIASIS
     Route: 058
     Dates: start: 20100428

REACTIONS (4)
  - INJECTION SITE HAEMORRHAGE [None]
  - INJECTION SITE PAPULE [None]
  - INCORRECT DOSE ADMINISTERED [None]
  - INJECTION SITE EXTRAVASATION [None]
